FAERS Safety Report 21915002 (Version 1)
Quarter: 2023Q1

REPORT INFORMATION
  Report Type: Spontaneous
  Country: US (occurrence: US)
  Receive Date: 20230126
  Receipt Date: 20230126
  Transmission Date: 20230418
  Serious: No
  Sender: FDA-Public Use
  Company Number: US-CATALYST PHARMACEUTICALS, INC-2022CAT00612

PATIENT
  Age: 42 Year
  Sex: Female

DRUGS (3)
  1. FIRDAPSE [Suspect]
     Active Substance: AMIFAMPRIDINE PHOSPHATE
     Indication: Myasthenic syndrome
  2. MESTINON [Concomitant]
     Active Substance: PYRIDOSTIGMINE BROMIDE
  3. HUMAN IMMUNOGLOBULIN G [Concomitant]
     Active Substance: HUMAN IMMUNOGLOBULIN G

REACTIONS (7)
  - Therapeutic product effect decreased [Unknown]
  - Mobility decreased [Not Recovered/Not Resolved]
  - Apathy [Unknown]
  - Product substitution issue [Unknown]
  - Nocturia [Not Recovered/Not Resolved]
  - Therapeutic product effect incomplete [Unknown]
  - Unevaluable event [Unknown]
